FAERS Safety Report 6925571-2 (Version None)
Quarter: 2010Q3

REPORT INFORMATION
  Report Type: 
  Country: None (occurrence: None)
  Receive Date: 20100813
  Receipt Date: 20100813
  Transmission Date: 20110219
  Serious: No
  Sender: FDA-Public Use
  Company Number: None

PATIENT
  Sex: Female
  Weight: 103.6 kg

DRUGS (2)
  1. CYCLOPHOSPHAMIDE [Suspect]
  2. DOXORUBICIN HYDROCHLORIDE [Suspect]
     Dosage: 130.2 MG

REACTIONS (2)
  - DYSPEPSIA [None]
  - NO THERAPEUTIC RESPONSE [None]
